FAERS Safety Report 13882284 (Version 1)
Quarter: 2017Q3

REPORT INFORMATION
  Report Type: Spontaneous
  Country: US (occurrence: US)
  Receive Date: 20170818
  Receipt Date: 20170818
  Transmission Date: 20171127
  Serious: Yes (Other)
  Sender: FDA-Public Use
  Company Number: US-TEVA-798461USA

PATIENT
  Age: 76 Year
  Sex: Male
  Weight: 86.6 kg

DRUGS (4)
  1. HYDROXYCARBAMIDE [Suspect]
     Active Substance: HYDROXYUREA
     Route: 065
  2. INC424 [Concomitant]
     Active Substance: RUXOLITINIB
     Dosage: 30 MILLIGRAM DAILY;
     Route: 048
     Dates: start: 20121023, end: 20121120
  3. INC424 [Concomitant]
     Active Substance: RUXOLITINIB
     Indication: POLYCYTHAEMIA VERA
     Dosage: 20 MILLIGRAM DAILY;
     Route: 048
     Dates: start: 20120925, end: 20121023
  4. INC424 [Concomitant]
     Active Substance: RUXOLITINIB
     Dosage: 40 MILLIGRAM DAILY;
     Route: 048
     Dates: start: 20121120

REACTIONS (2)
  - Squamous cell carcinoma [Unknown]
  - Bowen^s disease [Unknown]
